FAERS Safety Report 10210395 (Version 1)
Quarter: 2014Q2

REPORT INFORMATION
  Report Type: Spontaneous
  Country: CH (occurrence: CH)
  Receive Date: 20140602
  Receipt Date: 20140602
  Transmission Date: 20141212
  Serious: Yes (Hospitalization, Other)
  Sender: FDA-Public Use
  Company Number: CH-TEVA-483587ISR

PATIENT
  Age: 78 Year
  Sex: Male

DRUGS (10)
  1. IRFEN [Suspect]
     Indication: BACK PAIN
     Route: 048
     Dates: end: 20140418
  2. MARCOUMAR [Suspect]
     Indication: ATRIAL FIBRILLATION
     Dosage: 1 DOSAGE FORMS DAILY; DRUG WAS PAUSED AT THE TIME OF INITIAL REPORTING, A RECHALLENGE WAS PLANNED
     Route: 048
     Dates: start: 20130814, end: 20140418
  3. ASPIRIN CARDIO [Interacting]
     Indication: PERIPHERAL ARTERIAL OCCLUSIVE DISEASE
     Dosage: 100 MILLIGRAM DAILY;
     Route: 048
     Dates: end: 20140418
  4. PRADIF [Concomitant]
     Route: 065
  5. FLUDEX [Concomitant]
     Route: 065
  6. BENERVA [Concomitant]
     Route: 065
  7. BECOZYM-F [Concomitant]
     Route: 065
  8. METOPROLOL-MEPHA ZOK [Concomitant]
     Route: 065
  9. ATORVASTATIN PFIZER [Concomitant]
     Route: 065
  10. AMIODARON-MEPHA [Concomitant]
     Route: 065

REACTIONS (8)
  - Gastric haemorrhage [Recovering/Resolving]
  - Melaena [Recovering/Resolving]
  - Anaemia [Recovering/Resolving]
  - Gastritis erosive [Unknown]
  - Dizziness [Unknown]
  - Asthenia [Unknown]
  - Diarrhoea [Unknown]
  - Drug interaction [Recovered/Resolved]
